FAERS Safety Report 9537173 (Version 3)
Quarter: 2013Q4

REPORT INFORMATION
  Report Type: Report from Study
  Country: FR (occurrence: FR)
  Receive Date: 20130919
  Receipt Date: 20131003
  Transmission Date: 20140711
  Serious: Yes (Hospitalization, Other)
  Sender: FDA-Public Use
  Company Number: PHHO2013FR009796

PATIENT
  Sex: 0

DRUGS (10)
  1. SIMULECT [Suspect]
     Indication: LIVER TRANSPLANT
     Dosage: 20 MG/^D^
     Route: 048
     Dates: start: 20130713
  2. NO TREATMENT RECEIVED [Suspect]
     Indication: LIVER TRANSPLANT
     Dosage: NO TREATMENT
  3. MYFORTIC [Concomitant]
     Indication: LIVER TRANSPLANT
     Dosage: 720 MG, BID
     Route: 048
     Dates: start: 20130713, end: 20130714
  4. MYFORTIC [Concomitant]
     Route: 048
     Dates: start: 20130716
  5. SOLUMEDROL [Concomitant]
     Indication: IMMUNOSUPPRESSION
     Dosage: 200 MG, ^D^
     Route: 048
     Dates: start: 20130714, end: 20130714
  6. SOLUMEDROL [Concomitant]
     Dates: start: 20130715
  7. INSULIN [Concomitant]
     Indication: HYPERGLYCAEMIA
     Dosage: 1 ^UI/H
     Route: 042
     Dates: start: 20130713
  8. EUPRESSYL [Concomitant]
     Indication: HYPERTENSION
     Dosage: 10 MG/H,
     Route: 042
     Dates: start: 20130715
  9. ROVALCYTE [Concomitant]
     Indication: PROPHYLAXIS
     Dosage: 450 MG/D
     Route: 048
     Dates: start: 20130715
  10. CALCIPARINE [Concomitant]
     Indication: PROPHYLAXIS
     Dosage: 5000 UI BID
     Route: 058
     Dates: start: 20130716

REACTIONS (1)
  - Respiratory failure [Recovered/Resolved]
